FAERS Safety Report 4478357-5 (Version None)
Quarter: 2004Q4

REPORT INFORMATION
  Report Type: 
  Country: None (occurrence: None)
  Receive Date: 20041019
  Receipt Date: 20040831
  Transmission Date: 20050328
  Serious: Yes (Other)
  Sender: FDA-Public Use
  Company Number: PHBS2004JP11661

PATIENT
  Age: 28 Year
  Sex: Male
  Weight: 67 kg

DRUGS (6)
  1. SANDIMMUNE [Suspect]
     Indication: BEHCET'S SYNDROME
     Dosage: 250 MG/D
     Dates: start: 20040813, end: 20040827
  2. NEORAL [Suspect]
     Indication: BEHCET'S SYNDROME
     Dosage: 250 MG/DAY
     Route: 048
     Dates: start: 20040501, end: 20040701
  3. NEUROTROPIN [Concomitant]
     Dosage: 3.6 UG/D
     Route: 042
     Dates: start: 20040813
  4. DIAMOX [Concomitant]
     Dosage: 1000 MG/D
     Route: 042
     Dates: start: 20040813
  5. LOXONIN [Concomitant]
     Dosage: 180 MG/D
     Route: 048
     Dates: start: 20040718
  6. PREDONINE [Concomitant]
     Dosage: 40 MG/D
     Route: 048
     Dates: start: 20040710

REACTIONS (4)
  - HEADACHE [None]
  - OPTIC NEURITIS RETROBULBAR [None]
  - VISION BLURRED [None]
  - VISUAL ACUITY REDUCED [None]
